FAERS Safety Report 9792118 (Version 1)
Quarter: 2014Q1

REPORT INFORMATION
  Report Type: Spontaneous
  Country: IN (occurrence: IN)
  Receive Date: 20140102
  Receipt Date: 20140102
  Transmission Date: 20141002
  Serious: Yes (Other)
  Sender: FDA-Public Use
  Company Number: IN-SA-2014SA000034

PATIENT
  Age: 52 Year
  Sex: Female

DRUGS (2)
  1. LEFLUNOMIDE [Suspect]
     Indication: RHEUMATOID ARTHRITIS
     Route: 048
  2. PREDNISOLONE [Concomitant]
     Indication: RHEUMATOID ARTHRITIS
     Dosage: 7.5-10 MG
     Route: 048

REACTIONS (11)
  - Lepromatous leprosy [Recovering/Resolving]
  - Rash erythematous [Recovering/Resolving]
  - Ulcer [Recovering/Resolving]
  - Arthralgia [Recovering/Resolving]
  - Local swelling [Recovering/Resolving]
  - Hypoaesthesia [Recovering/Resolving]
  - Blood uric acid increased [Recovering/Resolving]
  - Blood creatinine increased [Recovering/Resolving]
  - C-reactive protein increased [Recovering/Resolving]
  - Hyperaesthesia [Recovering/Resolving]
  - Muscle atrophy [Recovering/Resolving]
